FAERS Safety Report 6434248-1 (Version None)
Quarter: 2009Q4

REPORT INFORMATION
  Report Type: 
  Country: None (occurrence: None)
  Receive Date: 20091110
  Receipt Date: 20090507
  Transmission Date: 20100525
  Serious: No
  Sender: FDA-Public Use
  Company Number: US-ASTRAZENECA-2009SE09026

PATIENT
  Sex: Female

DRUGS (4)
  1. PRILOSEC OTC [Suspect]
     Route: 048
     Dates: start: 20090504
  2. COREX [Concomitant]
  3. AVAPRO [Concomitant]
  4. VITAMINS [Concomitant]

REACTIONS (2)
  - HEADACHE [None]
  - JOINT SWELLING [None]
